FAERS Safety Report 19221873 (Version 1)
Quarter: 2021Q2

REPORT INFORMATION
  Report Type: Spontaneous
  Country: US (occurrence: US)
  Receive Date: 20210506
  Receipt Date: 20210506
  Transmission Date: 20210717
  Serious: Yes (Hospitalization)
  Sender: FDA-Public Use
  Company Number: US-ENDO PHARMACEUTICALS INC-2021-002730

PATIENT
  Age: 58 Year
  Sex: Female

DRUGS (1)
  1. BACLOFEN. [Suspect]
     Active Substance: BACLOFEN
     Indication: PRODUCT USED FOR UNKNOWN INDICATION
     Dosage: 30 MG, DAILY
     Route: 048

REACTIONS (4)
  - Drug withdrawal syndrome [Recovering/Resolving]
  - Opsoclonus myoclonus [Recovering/Resolving]
  - Product dose omission issue [Recovered/Resolved]
  - Respiratory distress [Recovered/Resolved]
